FAERS Safety Report 6367286-8 (Version None)
Quarter: 2009Q3

REPORT INFORMATION
  Report Type: 
  Country: None (occurrence: None)
  Receive Date: 20090821
  Receipt Date: 20090605
  Transmission Date: 20100115
  Serious: No
  Sender: FDA-Public Use
  Company Number: 8037320

PATIENT
  Age: 30 Year
  Sex: Male
  Weight: 97.73 kg

DRUGS (6)
  1. CIMZIA [Suspect]
     Indication: CROHN'S DISEASE
     Dosage: 400 MG 1/2W SC
     Route: 058
     Dates: start: 20080915
  2. PENTASA [Concomitant]
  3. PREDNISONE [Concomitant]
  4. PRILOSEC [Concomitant]
  5. AMBIEN [Concomitant]
  6. OXYCODONE HCL AND ACETAMINOPHEN [Concomitant]

REACTIONS (5)
  - DIZZINESS [None]
  - FATIGUE [None]
  - HEADACHE [None]
  - INSOMNIA [None]
  - RASH [None]
